FAERS Safety Report 23530143 (Version 1)
Quarter: 2024Q1

REPORT INFORMATION
  Report Type: Spontaneous
  Country: US (occurrence: US)
  Receive Date: 20240216
  Receipt Date: 20240216
  Transmission Date: 20240409
  Serious: Yes (Other)
  Sender: FDA-Public Use
  Company Number: US-DRL-USA-LIT/USA/24/0002663

PATIENT
  Age: 79 Year
  Sex: Male

DRUGS (2)
  1. DIFLUPREDNATE [Suspect]
     Active Substance: DIFLUPREDNATE
     Indication: Macular hole
     Route: 047
  2. BROMFENAC [Suspect]
     Active Substance: BROMFENAC SODIUM
     Indication: Macular hole

REACTIONS (1)
  - Rebound effect [Recovered/Resolved]
